FAERS Safety Report 8537093-6 (Version None)
Quarter: 2012Q3

REPORT INFORMATION
  Report Type: 
  Country: None (occurrence: None)
  Receive Date: 20120725
  Receipt Date: 20120717
  Transmission Date: 20120928
  Serious: Yes (Death)
  Sender: FDA-Public Use
  Company Number: JP-PFIZER INC-2012165857

PATIENT
  Age: 73 Year
  Sex: Male
  Weight: 41 kg

DRUGS (5)
  1. TEMSIROLIMUS [Suspect]
     Indication: METASTATIC RENAL CELL CARCINOMA
     Dosage: 25 MG, WEEKLY
     Route: 041
     Dates: start: 20120223
  2. TEMSIROLIMUS [Suspect]
     Dosage: 25 MG, WEEKLY
     Route: 041
     Dates: start: 20120309
  3. TEMSIROLIMUS [Suspect]
     Dosage: 25 MG, WEEKLY
     Route: 041
     Dates: start: 20120316
  4. TEMSIROLIMUS [Suspect]
     Dosage: 25 MG, WEEKLY
     Route: 041
     Dates: start: 20120327, end: 20120403
  5. POLARAMINE [Concomitant]
     Indication: PROPHYLAXIS
     Dosage: 5 MG, 1X/DAY
     Route: 042

REACTIONS (2)
  - METASTATIC RENAL CELL CARCINOMA [None]
  - DISEASE PROGRESSION [None]
